FAERS Safety Report 6485260-8 (Version None)
Quarter: 2009Q4

REPORT INFORMATION
  Report Type: 
  Country: None (occurrence: None)
  Receive Date: 20091209
  Receipt Date: 20091202
  Transmission Date: 20100525
  Serious: Yes (Death)
  Sender: FDA-Public Use
  Company Number: TW-MERCK-0912TWN00001

PATIENT
  Age: 24 Year
  Sex: Female

DRUGS (3)
  1. PRIMAXIN [Suspect]
     Indication: INFECTION PROPHYLAXIS
     Route: 041
  2. VANCOMYCIN [Concomitant]
     Indication: INFECTION PROPHYLAXIS
     Route: 041
  3. FLUCONAZOLE [Concomitant]
     Indication: INFECTION PROPHYLAXIS
     Route: 041

REACTIONS (1)
  - DEATH [None]
